FAERS Safety Report 23804308 (Version 1)
Quarter: 2024Q2

REPORT INFORMATION
  Report Type: Spontaneous
  Country: US (occurrence: None)
  Receive Date: 20240501
  Receipt Date: 20240501
  Transmission Date: 20240716
  Serious: No
  Sender: FDA-Public Use
  Company Number: None

PATIENT
  Age: 49 Year
  Sex: Female

DRUGS (1)
  1. ADALIMUMAB-FKJP [Suspect]
     Active Substance: ADALIMUMAB-FKJP
     Indication: Psoriasis
     Route: 058
     Dates: start: 20240429, end: 20240429

REACTIONS (4)
  - Joint swelling [None]
  - Arthralgia [None]
  - Hypersensitivity [None]
  - Lupus-like syndrome [None]

NARRATIVE: CASE EVENT DATE: 20240429
